FAERS Safety Report 21812967 (Version 1)
Quarter: 2023Q1

REPORT INFORMATION
  Report Type: Spontaneous
  Country: US (occurrence: None)
  Receive Date: 20230102
  Receipt Date: 20230102
  Transmission Date: 20230418
  Serious: Yes (Hospitalization, Disabling)
  Sender: FDA-Public Use
  Company Number: None

PATIENT
  Age: 63 Year
  Sex: Female
  Weight: 59.85 kg

DRUGS (6)
  1. ZOMETA [Suspect]
     Active Substance: ZOLEDRONIC ACID
     Indication: Osteoporosis
     Dosage: FREQUENCY : ONCE;?
     Route: 042
     Dates: start: 20211028, end: 20211028
  2. DEVICE [Concomitant]
     Active Substance: DEVICE
  3. SENNA [Concomitant]
     Active Substance: SENNA LEAF\SENNOSIDES\SENNOSIDES A AND B
  4. MAGNESIUM [Concomitant]
     Active Substance: MAGNESIUM
  5. BIOTIN [Concomitant]
     Active Substance: BIOTIN
  6. CALCIUM CITRATE\VITAMIN D [Concomitant]
     Active Substance: CALCIUM CITRATE\VITAMIN D

REACTIONS (18)
  - Eye pain [None]
  - Photophobia [None]
  - Vision blurred [None]
  - Diplopia [None]
  - Eyelid ptosis [None]
  - Headache [None]
  - Neck pain [None]
  - Nausea [None]
  - Vomiting [None]
  - Myalgia [None]
  - Arthralgia [None]
  - Diarrhoea [None]
  - Tremor [None]
  - Chills [None]
  - Fatigue [None]
  - Pyrexia [None]
  - Periorbital cellulitis [None]
  - Cellulitis orbital [None]

NARRATIVE: CASE EVENT DATE: 20211028
